FAERS Safety Report 20683433 (Version 1)
Quarter: 2022Q2

REPORT INFORMATION
  Report Type: Other
  Country: None (occurrence: ES)
  Receive Date: 20220407
  Receipt Date: 20220407
  Transmission Date: 20220721
  Serious: Yes (Other)
  Sender: FDA-Public Use
  Company Number: ES-Innogenix, LLC-2127489

PATIENT
  Age: 48 Year
  Sex: Male

DRUGS (1)
  1. METRONIDAZOLE [Suspect]
     Active Substance: METRONIDAZOLE
     Indication: Amoebiasis
     Route: 065

REACTIONS (3)
  - Polyneuropathy [Recovered/Resolved]
  - Intentional product misuse [Unknown]
  - Cytotoxic oedema [Recovered/Resolved]
